FAERS Safety Report 10237252 (Version 2)
Quarter: 2014Q2

REPORT INFORMATION
  Report Type: Spontaneous
  Country: US (occurrence: US)
  Receive Date: 20140613
  Receipt Date: 20140620
  Transmission Date: 20141212
  Serious: Yes (Death, Hospitalization)
  Sender: FDA-Public Use
  Company Number: US-TAKEDA-2014TUS004610

PATIENT
  Age: 28 Year
  Sex: Male

DRUGS (5)
  1. BRINTELLIX [Suspect]
     Indication: DEPRESSION
     Dosage: 10 MG, QD
     Route: 048
     Dates: start: 20140428
  2. NPH INSULIN [Concomitant]
     Indication: TYPE 1 DIABETES MELLITUS
     Dosage: UNK
  3. INSULIN [Concomitant]
     Indication: TYPE 1 DIABETES MELLITUS
     Dosage: UNK
  4. AMITIZA [Concomitant]
     Indication: CONSTIPATION
     Dosage: UNK
  5. DIAZEPAM [Concomitant]
     Indication: ANXIETY
     Dosage: UNK

REACTIONS (2)
  - Death [Fatal]
  - Blood glucose increased [Unknown]
